FAERS Safety Report 5731265-1 (Version None)
Quarter: 2008Q2

REPORT INFORMATION
  Report Type: 
  Country: None (occurrence: None)
  Receive Date: 20080505
  Receipt Date: 20080430
  Transmission Date: 20081010
  Serious: Yes (Death)
  Sender: FDA-Public Use
  Company Number: 2008-01514

PATIENT
  Sex: Female

DRUGS (1)
  1. VELCADE [Suspect]
     Indication: MULTIPLE MYELOMA
     Dosage: INTRAVENOUS
     Route: 042
     Dates: start: 20080421, end: 20080421

REACTIONS (3)
  - HEPATIC HAEMORRHAGE [None]
  - HEPATIC NEOPLASM [None]
  - POST PROCEDURAL HAEMORRHAGE [None]
